FAERS Safety Report 9384477 (Version 1)
Quarter: 2013Q3

REPORT INFORMATION
  Report Type: Spontaneous
  Country: FR (occurrence: FR)
  Receive Date: 20130705
  Receipt Date: 20130705
  Transmission Date: 20140515
  Serious: Yes (Death, Hospitalization, Other)
  Sender: FDA-Public Use
  Company Number: FR-GENZYME-THYM-1003887

PATIENT
  Age: 55 Year
  Sex: Male

DRUGS (6)
  1. THYMOGLOBULINE [Suspect]
     Indication: IMMUNOSUPPRESSANT DRUG THERAPY
     Dosage: UNK
     Route: 065
  2. TACROLIMUS [Suspect]
     Indication: IMMUNOSUPPRESSANT DRUG THERAPY
     Dosage: 8-10 NG/ML, UNK
     Route: 065
  3. TACROLIMUS [Suspect]
     Dosage: 4 NG/ML, UNK
     Route: 065
  4. MYCOPHENOLATE MOFETIL [Suspect]
     Indication: IMMUNOSUPPRESSANT DRUG THERAPY
     Dosage: 1 G, QD
     Route: 065
  5. UNSPECIFIED [Suspect]
     Indication: IMMUNOSUPPRESSANT DRUG THERAPY
     Dosage: UNK
     Route: 065
  6. PREDNISONE [Suspect]
     Indication: IMMUNOSUPPRESSANT DRUG THERAPY
     Dosage: 5 MG, QD
     Route: 065

REACTIONS (12)
  - Intracranial pressure increased [Unknown]
  - Fungal infection [Fatal]
  - Fatigue [None]
  - Abdominal pain [None]
  - Confusional state [None]
  - Ascites [None]
  - Anaemia [None]
  - Mass [None]
  - Lymphopenia [None]
  - Brain oedema [None]
  - Pulmonary mass [None]
  - Coma [None]
